FAERS Safety Report 12414939 (Version 1)
Quarter: 2016Q2

REPORT INFORMATION
  Report Type: Spontaneous
  Country: US (occurrence: US)
  Receive Date: 20160530
  Receipt Date: 20160530
  Transmission Date: 20160815
  Serious: Yes (Other)
  Sender: FDA-Public Use
  Company Number: US-ROCHE-1762758

PATIENT
  Age: 84 Year
  Sex: Male
  Weight: 62.5 kg

DRUGS (10)
  1. OPDIVO [Concomitant]
     Active Substance: NIVOLUMAB
     Indication: THERAPEUTIC PROCEDURE
     Dosage: 2 WEEKS
     Route: 042
     Dates: start: 201601
  2. ZELBORAF [Suspect]
     Active Substance: VEMURAFENIB
     Dosage: 2 TABLET PER DAY
     Route: 048
  3. ASPIR 81 [Concomitant]
     Route: 065
  4. IPILIMUMAB [Concomitant]
     Active Substance: IPILIMUMAB
     Route: 065
     Dates: start: 201503
  5. REGORAFENIB [Concomitant]
     Active Substance: REGORAFENIB
     Dosage: 2 TABS FOR 21 DAYS
     Route: 065
  6. ZELBORAF [Suspect]
     Active Substance: VEMURAFENIB
     Dosage: 1 TABLET PER DAY
     Route: 048
  7. MEGACE [Concomitant]
     Active Substance: MEGESTROL ACETATE
     Dosage: 40 MG/ML
     Route: 048
  8. ZELBORAF [Suspect]
     Active Substance: VEMURAFENIB
     Indication: METASTATIC MALIGNANT MELANOMA
     Dosage: 4 TABLETS PER DAY
     Route: 048
     Dates: start: 201601
  9. LEVOTHYROXINE SODIUM. [Concomitant]
     Active Substance: LEVOTHYROXINE SODIUM
     Route: 065
  10. FLUCONAZOLE. [Concomitant]
     Active Substance: FLUCONAZOLE
     Route: 048

REACTIONS (11)
  - Cognitive disorder [Not Recovered/Not Resolved]
  - Arthralgia [Not Recovered/Not Resolved]
  - Confusional state [Unknown]
  - Asthenia [Unknown]
  - Fatigue [Not Recovered/Not Resolved]
  - Hypersomnia [Not Recovered/Not Resolved]
  - Sunburn [Recovered/Resolved]
  - Dysphagia [Not Recovered/Not Resolved]
  - Oesophageal candidiasis [Not Recovered/Not Resolved]
  - Erythema [Recovered/Resolved]
  - Asthenia [Not Recovered/Not Resolved]

NARRATIVE: CASE EVENT DATE: 20160220
